FAERS Safety Report 9798441 (Version 1)
Quarter: 2014Q1

REPORT INFORMATION
  Report Type: Spontaneous
  Country: FR (occurrence: FR)
  Receive Date: 20140106
  Receipt Date: 20140106
  Transmission Date: 20141002
  Serious: Yes (Hospitalization)
  Sender: FDA-Public Use
  Company Number: FR-PFIZER INC-2013373492

PATIENT
  Age: 78 Year
  Sex: Male

DRUGS (2)
  1. TAHOR [Suspect]
     Dosage: 40 MG, DAILY
     Route: 048
     Dates: start: 20131026, end: 20131127
  2. INEXIUM [Suspect]
     Dosage: UNK
     Dates: end: 20131120

REACTIONS (1)
  - Agranulocytosis [Unknown]
